FAERS Safety Report 6978068-8 (Version None)
Quarter: 2010Q3

REPORT INFORMATION
  Report Type: 
  Country: None (occurrence: None)
  Receive Date: 20100913
  Receipt Date: 20100902
  Transmission Date: 20110219
  Serious: No
  Sender: FDA-Public Use
  Company Number: US-JNJFOC-20100901459

PATIENT
  Sex: Female
  Weight: 97.52 kg

DRUGS (12)
  1. FENTANYL CITRATE [Suspect]
     Indication: COMPLEX REGIONAL PAIN SYNDROME
     Dosage: NDC:0781-7242-55
     Route: 062
  2. FENTANYL CITRATE [Suspect]
     Indication: FIBROMYALGIA
     Dosage: NDC:0781-7242-55
     Route: 062
  3. FENTANYL CITRATE [Suspect]
     Route: 062
  4. FENTANYL CITRATE [Suspect]
     Route: 062
  5. LYRICA [Concomitant]
     Indication: FIBROMYALGIA
     Route: 048
  6. CELEBREX [Concomitant]
     Indication: ARTHRITIS
     Route: 048
  7. MAGNESIUM [Concomitant]
     Indication: CONSTIPATION
     Route: 048
  8. MAGNESIUM [Concomitant]
     Indication: NEUROPATHY PERIPHERAL
     Route: 048
  9. LORATADINE [Concomitant]
     Indication: MULTIPLE ALLERGIES
     Route: 048
  10. QUINIDINE HCL [Concomitant]
     Indication: PAIN
     Route: 048
  11. AMRIX [Concomitant]
     Indication: HYPOTONIA
     Route: 048
  12. TRAMADOL HCL [Concomitant]
     Indication: BREAKTHROUGH PAIN
     Dosage: 50 MG TABLET ONE OR TWO TABLETS EVERY 4 TO 8 HOURS FOR PAIN ORAL
     Route: 048

REACTIONS (2)
  - DRUG ADMINISTERED AT INAPPROPRIATE SITE [None]
  - PRODUCT ADHESION ISSUE [None]
